FAERS Safety Report 20893158 (Version 3)
Quarter: 2022Q4

REPORT INFORMATION
  Report Type: Report from Study
  Country: US (occurrence: US)
  Receive Date: 20220531
  Receipt Date: 20221121
  Transmission Date: 20230113
  Serious: No
  Sender: FDA-Public Use
  Company Number: US-BRISTOL-MYERS SQUIBB COMPANY-2022-042989

PATIENT
  Age: 37 Year
  Sex: Female

DRUGS (1)
  1. ZEPOSIA [Suspect]
     Active Substance: OZANIMOD HYDROCHLORIDE
     Indication: Multiple sclerosis
     Route: 048
     Dates: start: 20210320

REACTIONS (6)
  - Fatigue [Unknown]
  - Multiple sclerosis relapse [Recovered/Resolved]
  - Hyperaesthesia [Recovered/Resolved]
  - Gait disturbance [Recovered/Resolved]
  - Product dose omission issue [Unknown]
  - Somnolence [Unknown]
